FAERS Safety Report 8831878 (Version 3)
Quarter: 2012Q4

REPORT INFORMATION
  Report Type: 
  Country: US (occurrence: US)
  Receive Date: 20121008
  Receipt Date: 20121214
  Transmission Date: 20130627
  Serious: Yes (Hospitalization)
  Sender: FDA-Public Use
  Company Number: US-ELI_LILLY_AND_COMPANY-US201210001279

PATIENT
  Sex: Female
  Weight: 44.44 kg

DRUGS (8)
  1. FORTEO [Suspect]
     Indication: OSTEOPOROSIS
     Dosage: 20 ug, 2/W
     Dates: start: 201202
  2. FORTEO [Suspect]
     Dosage: 20 ug, qd
  3. FORTEO [Suspect]
     Dosage: 20 ug, qd
     Route: 058
     Dates: start: 20120820
  4. REBIF [Concomitant]
     Dosage: UNK
  5. PEPCID                             /00706001/ [Concomitant]
  6. LORATADINE [Concomitant]
  7. VITAMIN D [Concomitant]
  8. CALCIUM [Concomitant]

REACTIONS (3)
  - Osteoporosis [Not Recovered/Not Resolved]
  - Incorrect dose administered [Recovered/Resolved]
  - Walking disability [Recovering/Resolving]
